FAERS Safety Report 4871617-5 (Version None)
Quarter: 2006Q1

REPORT INFORMATION
  Report Type: 
  Country: None (occurrence: None)
  Receive Date: 20060104
  Receipt Date: 20051226
  Transmission Date: 20060701
  Serious: Yes (Hospitalization)
  Sender: FDA-Public Use
  Company Number: JP-JNJFOC-20051202963

PATIENT
  Age: 75 Year
  Sex: Female

DRUGS (4)
  1. CRAVIT [Suspect]
     Route: 048
  2. CRAVIT [Suspect]
     Indication: TUBERCULOSIS
     Route: 048
  3. ISCOTIN [Concomitant]
  4. RIFADIN [Concomitant]
     Route: 048

REACTIONS (2)
  - CLOSTRIDIUM COLITIS [None]
  - HYPOGLYCAEMIA [None]
